FAERS Safety Report 10238759 (Version 3)
Quarter: 2014Q4

REPORT INFORMATION
  Report Type: Spontaneous
  Country: US (occurrence: None)
  Receive Date: 20140612
  Receipt Date: 20141112
  Transmission Date: 20150528
  Serious: Yes (Death, Hospitalization)
  Sender: FDA-Public Use
  Company Number: UNT-2014-001603

PATIENT
  Age: 47 Year
  Sex: Male
  Weight: 69.4 kg

DRUGS (4)
  1. REMODULIN [Suspect]
     Active Substance: TREPROSTINIL
     Indication: PULMONARY ARTERIAL HYPERTENSION
     Dosage: 0.011UG/KG/MIN
     Route: 041
     Dates: start: 20140228, end: 20140528
  2. COUMADIN [Concomitant]
     Active Substance: WARFARIN SODIUM
  3. ADCIRCA [Concomitant]
     Active Substance: TADALAFIL
  4. LETAIRIS [Concomitant]
     Active Substance: AMBRISENTAN

REACTIONS (7)
  - Dyspnoea exertional [None]
  - Sepsis [None]
  - Hypotension [None]
  - Dyspnoea [None]
  - Multi-organ failure [None]
  - Oxygen consumption increased [None]
  - Death [None]

NARRATIVE: CASE EVENT DATE: 20140508
